FAERS Safety Report 24760082 (Version 1)
Quarter: 2024Q4

REPORT INFORMATION
  Report Type: Spontaneous
  Country: FR (occurrence: FR)
  Receive Date: 20241220
  Receipt Date: 20241220
  Transmission Date: 20250115
  Serious: Yes (Other)
  Sender: B BRAUN
  Company Number: FR-B.Braun Medical Inc.-2167517

PATIENT
  Age: 56 Year
  Sex: Male
  Weight: 80.5 kg

DRUGS (10)
  1. METRONIDAZOLE [Suspect]
     Active Substance: METRONIDAZOLE
     Indication: Bronchopneumopathy
     Dates: start: 20241028, end: 20241112
  2. LANSOPRAZOLE [Suspect]
     Active Substance: LANSOPRAZOLE
  3. Enoxaparine Sodique?((Mammifere/Porc/Muq Ueuse Intestinale)) [Concomitant]
  4. PROPOFOL [Concomitant]
     Active Substance: PROPOFOL
  5. ACUPAN [Concomitant]
     Active Substance: NEFOPAM HYDROCHLORIDE
  6. FERINJECT [Concomitant]
     Active Substance: FERRIC CARBOXYMALTOSE
  7. ACETAMINOPHEN [Concomitant]
     Active Substance: ACETAMINOPHEN
  8. HALOPERIDOL [Suspect]
     Active Substance: HALOPERIDOL
  9. CEFTRIAXONE SODIUM [Suspect]
     Active Substance: CEFTRIAXONE SODIUM
  10. PANTOPRAZOLE [Suspect]
     Active Substance: PANTOPRAZOLE

REACTIONS (2)
  - Agranulocytosis [Recovered/Resolved]
  - Off label use [Recovered/Resolved]
